FAERS Safety Report 7809244-X (Version None)
Quarter: 2011Q4

REPORT INFORMATION
  Report Type: 
  Country: None (occurrence: None)
  Receive Date: 20111012
  Receipt Date: 20111007
  Transmission Date: 20120403
  Serious: Yes (Death, Life-Threatening, Hospitalization, Other)
  Sender: FDA-Public Use
  Company Number: US-BAYER-2011-073180

PATIENT
  Age: 70 Year
  Sex: Male

DRUGS (3)
  1. SORAFENIB (RAF KINASE INHIBITOR) [Suspect]
     Indication: PROSTATE CANCER
     Dosage: 200 MG, BID
     Route: 048
     Dates: start: 20110510, end: 20110808
  2. DAPSONE [Concomitant]
  3. RAPAMUNE [Concomitant]

REACTIONS (6)
  - RESPIRATORY FAILURE [None]
  - COUGH [None]
  - DYSPNOEA [None]
  - ASTHENIA [None]
  - BRONCHOPNEUMONIA [None]
  - PULSELESS ELECTRICAL ACTIVITY [None]
